FAERS Safety Report 21631592 (Version 2)
Quarter: 2023Q1

REPORT INFORMATION
  Report Type: Spontaneous
  Country: US (occurrence: US)
  Receive Date: 20221123
  Receipt Date: 20230113
  Transmission Date: 20230418
  Serious: No
  Sender: FDA-Public Use
  Company Number: US-GSKCCFUS-Case-01556937_AE-88026

PATIENT
  Sex: Female

DRUGS (1)
  1. TRELEGY ELLIPTA [Suspect]
     Active Substance: FLUTICASONE FUROATE\UMECLIDINIUM BROMIDE\VILANTEROL TRIFENATATE
     Indication: Product used for unknown indication
     Dosage: UNK, Z (100/62.5/25 MCG)
     Route: 055

REACTIONS (4)
  - Nervousness [Unknown]
  - Anxiety [Unknown]
  - Oropharyngeal discomfort [Unknown]
  - Product complaint [Unknown]
